FAERS Safety Report 9391755 (Version 1)
Quarter: 2013Q3

REPORT INFORMATION
  Report Type: Spontaneous
  Country: US (occurrence: US)
  Receive Date: 20130709
  Receipt Date: 20130709
  Transmission Date: 20140515
  Serious: Yes (Death, Hospitalization)
  Sender: FDA-Public Use
  Company Number: PHHY2013US071500

PATIENT
  Age: 24 Year
  Sex: Female

DRUGS (5)
  1. MYCOPHENOLATE MOFETIL [Suspect]
     Dosage: 1000 MG, PER DAY
  2. TACROLIMUS [Concomitant]
     Dosage: 20 MG, PER DAY
  3. PREDNISONE [Concomitant]
     Dosage: 2.5 MG, PER DAY
  4. PIPERACILLIN + TAZOBACTAM [Concomitant]
  5. VANCOMYCIN [Concomitant]

REACTIONS (4)
  - Upper gastrointestinal haemorrhage [Fatal]
  - Shock haemorrhagic [Fatal]
  - Herpes simplex hepatitis [Fatal]
  - Leukopenia [Unknown]
